FAERS Safety Report 14472611 (Version 21)
Quarter: 2025Q2

REPORT INFORMATION
  Report Type: Spontaneous
  Country: CA (occurrence: CA)
  Receive Date: 20180201
  Receipt Date: 20250630
  Transmission Date: 20250717
  Serious: Yes (Hospitalization, Other)
  Sender: MERCK SHARP & DOHME LLC
  Company Number: None

PATIENT
  Age: 48 Year
  Sex: Female
  Weight: 106 kg

DRUGS (148)
  1. APREPITANT [Suspect]
     Active Substance: APREPITANT
     Indication: Supportive care
     Dosage: DOSE DESCRIPTION : 80.0 MILLIGRAM; 1 EVERY 1 DAY(S) (QD)/ 80MG, 1X/DAY?DAILY DOSE : 80 MILLIGRAM?...
     Route: 048
     Dates: start: 20170331, end: 20170401
  2. APREPITANT [Suspect]
     Active Substance: APREPITANT
     Indication: Supportive care
     Dosage: DOSE DESCRIPTION : 125.0 MILLIGRAM; 1 EVERY 1 DAY(S) (QD)?DAILY DOSE : 125 MILLIGRAM?REGIMEN DOSE...
     Route: 048
  3. APREPITANT [Suspect]
     Active Substance: APREPITANT
     Indication: Supportive care
     Dosage: DOSE DESCRIPTION : UNK, EVERY DAY
     Route: 048
  4. APREPITANT [Suspect]
     Active Substance: APREPITANT
     Indication: Supportive care
     Dosage: DOSE DESCRIPTION : UNK, EVERY DAY
     Route: 048
  5. APREPITANT [Suspect]
     Active Substance: APREPITANT
     Indication: Supportive care
     Dosage: DOSE DESCRIPTION : UNK, EVERY DAY
     Route: 048
  6. APREPITANT [Suspect]
     Active Substance: APREPITANT
     Indication: Supportive care
     Dosage: DOSE DESCRIPTION : UNK, EVERY DAY
     Route: 048
  7. APREPITANT [Suspect]
     Active Substance: APREPITANT
     Indication: Supportive care
     Dosage: DOSE DESCRIPTION : 125.0 MILLIGRAM; 1 EVERY 1 DAY(S) (QD)?DAILY DOSE : 125 MILLIGRAM?REGIMEN DOSE...
     Route: 048
  8. APREPITANT [Suspect]
     Active Substance: APREPITANT
     Indication: Supportive care
     Dosage: DOSE DESCRIPTION : 125.0 MILLIGRAM; 1 EVERY 1 DAY(S) (QD)?DAILY DOSE : 125 MILLIGRAM?REGIMEN DOSE...
     Route: 048
  9. APREPITANT [Suspect]
     Active Substance: APREPITANT
     Indication: Supportive care
     Dosage: DOSE DESCRIPTION : 125.0 MILLIGRAM; 1 EVERY 1 DAY(S) (QD)?DAILY DOSE : 125 MILLIGRAM?REGIMEN DOSE...
     Route: 048
  10. APREPITANT [Suspect]
     Active Substance: APREPITANT
     Indication: Supportive care
     Dosage: DOSE DESCRIPTION : 125.0 MILLIGRAM; 1 EVERY 1 DAY(S) (QD)?DAILY DOSE : 125 MILLIGRAM?REGIMEN DOSE...
     Route: 048
  11. APREPITANT [Suspect]
     Active Substance: APREPITANT
     Indication: Supportive care
     Dosage: DOSE DESCRIPTION : 125.0 MILLIGRAM; 1 EVERY 1 DAY(S) (QD)?DAILY DOSE : 125 MILLIGRAM?REGIMEN DOSE...
     Route: 048
  12. APREPITANT [Suspect]
     Active Substance: APREPITANT
     Indication: Supportive care
     Dosage: DOSE DESCRIPTION : 80.0 MILLIGRAM; 1 EVERY 1 DAY(S) (QD)/ 80MG, UNK?DAILY DOSE : 80 MILLIGRAM
     Route: 048
  13. APREPITANT [Suspect]
     Active Substance: APREPITANT
     Indication: Supportive care
     Dosage: DOSE DESCRIPTION : 80.0 MILLIGRAM; 1 EVERY 1 DAY(S) (QD)/ 80MG, UNK?DAILY DOSE : 80 MILLIGRAM
     Route: 048
  14. APREPITANT [Suspect]
     Active Substance: APREPITANT
     Indication: Supportive care
     Dosage: DOSE DESCRIPTION : 80.0 MILLIGRAM; 1 EVERY 1 DAY(S) (QD)/ 80MG, UNK?DAILY DOSE : 80 MILLIGRAM
     Route: 048
  15. APREPITANT [Suspect]
     Active Substance: APREPITANT
     Indication: Supportive care
     Dosage: DOSE DESCRIPTION : 80.0 MILLIGRAM; 1 EVERY 1 DAY(S) (QD)/ 80MG, UNK?DAILY DOSE : 80 MILLIGRAM
     Route: 048
  16. APREPITANT [Suspect]
     Active Substance: APREPITANT
     Indication: Supportive care
     Dosage: DOSE DESCRIPTION : 80.0 MILLIGRAM; 1 EVERY 1 DAY(S) (QD)/ 80MG, UNK?DAILY DOSE : 80 MILLIGRAM
     Route: 048
  17. APREPITANT [Suspect]
     Active Substance: APREPITANT
     Indication: Supportive care
     Dosage: DOSE DESCRIPTION : 80.0 MILLIGRAM; 1 EVERY 1 DAY(S) (QD)/ 80MG, UNK?DAILY DOSE : 80 MILLIGRAM
     Route: 048
  18. APREPITANT [Suspect]
     Active Substance: APREPITANT
     Indication: Supportive care
     Dosage: DOSE DESCRIPTION : 80.0 MILLIGRAM; 1 EVERY 1 DAY(S) (QD)/ 80MG, UNK?DAILY DOSE : 80 MILLIGRAM
     Route: 048
  19. APREPITANT [Suspect]
     Active Substance: APREPITANT
     Indication: Supportive care
     Dosage: DOSE DESCRIPTION : 80.0 MILLIGRAM; 1 EVERY 1 DAY(S) (QD)/ 80MG, UNK?DAILY DOSE : 80 MILLIGRAM
     Route: 048
  20. APREPITANT [Suspect]
     Active Substance: APREPITANT
     Indication: Supportive care
     Dosage: DOSE DESCRIPTION : 80.0 MILLIGRAM; 1 EVERY 1 DAY(S) (QD)/ 80MG, UNK?DAILY DOSE : 80 MILLIGRAM
     Route: 048
  21. APREPITANT [Suspect]
     Active Substance: APREPITANT
     Indication: Supportive care
     Route: 048
  22. APREPITANT [Suspect]
     Active Substance: APREPITANT
     Indication: Supportive care
     Route: 048
  23. APREPITANT [Suspect]
     Active Substance: APREPITANT
     Indication: Supportive care
     Dosage: DOSE DESCRIPTION : UNK, EVERY DAY
     Route: 048
  24. APREPITANT [Suspect]
     Active Substance: APREPITANT
     Indication: Supportive care
     Dosage: DOSE DESCRIPTION : UNK, EVERY DAY
     Route: 048
  25. APREPITANT [Suspect]
     Active Substance: APREPITANT
     Indication: Supportive care
     Dosage: DOSE DESCRIPTION : UNK, EVERY DAY
     Route: 048
  26. APREPITANT [Suspect]
     Active Substance: APREPITANT
     Indication: Supportive care
     Dosage: DOSE DESCRIPTION : UNK, EVERY DAY
     Route: 048
  27. TYLENOL WITH CODEINE [Suspect]
     Active Substance: ACETAMINOPHEN\CODEINE PHOSPHATE
     Indication: Tardive dyskinesia
     Dosage: 30 MG EVERY 4 HOURS
     Route: 048
  28. ACETAMINOPHEN\CAFFEINE\CODEINE PHOSPHATE [Suspect]
     Active Substance: ACETAMINOPHEN\CAFFEINE\CODEINE PHOSPHATE
     Indication: Tardive dyskinesia
     Dosage: DOSE DESCRIPTION : 30 MILLIGRAM, QD; FORM: ELIXIR?DAILY DOSE : 30 MILLIGRAM
     Route: 048
  29. ACETAMINOPHEN\CAFFEINE\CODEINE PHOSPHATE [Suspect]
     Active Substance: ACETAMINOPHEN\CAFFEINE\CODEINE PHOSPHATE
     Indication: Tardive dyskinesia
     Route: 048
  30. ACETAMINOPHEN\CAFFEINE\CODEINE PHOSPHATE [Suspect]
     Active Substance: ACETAMINOPHEN\CAFFEINE\CODEINE PHOSPHATE
     Indication: Tardive dyskinesia
     Dosage: DOSE DESCRIPTION : 30 MILLIGRAM, QD; FORM: TABLET?DAILY DOSE : 30 MILLIGRAM
     Route: 048
  31. ACETAMINOPHEN\CAFFEINE\CODEINE PHOSPHATE [Suspect]
     Active Substance: ACETAMINOPHEN\CAFFEINE\CODEINE PHOSPHATE
     Indication: Tardive dyskinesia
     Dosage: DOSE DESCRIPTION : 30 MILLIGRAM, Q4H; FORM: TABLET?DAILY DOSE : 180 MILLIGRAM
     Route: 048
  32. ACETAMINOPHEN\CAFFEINE\CODEINE PHOSPHATE [Suspect]
     Active Substance: ACETAMINOPHEN\CAFFEINE\CODEINE PHOSPHATE
     Indication: Tardive dyskinesia
     Dosage: DOSE DESCRIPTION : 30 MILLIGRAM, Q4H; FORM: TABLET?DAILY DOSE : 180 MILLIGRAM
     Route: 048
  33. ACETAMINOPHEN\CAFFEINE\CODEINE PHOSPHATE [Suspect]
     Active Substance: ACETAMINOPHEN\CAFFEINE\CODEINE PHOSPHATE
     Indication: Tardive dyskinesia
     Dosage: DOSE DESCRIPTION : 30 MILLIGRAM, QD; FORM: TABLET?DAILY DOSE : 30 MILLIGRAM
     Route: 048
  34. ACETAMINOPHEN\CAFFEINE\CODEINE PHOSPHATE [Suspect]
     Active Substance: ACETAMINOPHEN\CAFFEINE\CODEINE PHOSPHATE
     Indication: Tardive dyskinesia
     Dosage: DOSE DESCRIPTION : 30 MILLIGRAM, Q4H; FORM: TABLET?DAILY DOSE : 180 MILLIGRAM
     Route: 048
  35. BETAMETHASONE [Suspect]
     Active Substance: BETAMETHASONE
     Indication: Tardive dyskinesia
     Dosage: DOSE DESCRIPTION : 2 DOSAGE FORM, QD?DAILY DOSE : 2 DOSAGE FORM
     Route: 048
  36. BETAMETHASONE [Suspect]
     Active Substance: BETAMETHASONE
     Indication: Tardive dyskinesia
     Dosage: DOSE DESCRIPTION : UNK, Q12H
     Route: 048
  37. BETAMETHASONE [Suspect]
     Active Substance: BETAMETHASONE
     Indication: Tardive dyskinesia
     Route: 048
  38. BETAMETHASONE [Suspect]
     Active Substance: BETAMETHASONE
     Indication: Tardive dyskinesia
     Dosage: DOSE DESCRIPTION : UNK, Q12H
     Route: 048
  39. BETAMETHASONE [Suspect]
     Active Substance: BETAMETHASONE
     Indication: Tardive dyskinesia
     Route: 048
  40. CYCLOPHOSPHAMIDE [Suspect]
     Active Substance: CYCLOPHOSPHAMIDE
     Indication: Tardive dyskinesia
     Route: 042
  41. DEXAMETHASONE [Suspect]
     Active Substance: DEXAMETHASONE
     Indication: Supportive care
     Dosage: DOSE DESCRIPTION : 20.0 MILLIGRAM; 1 EVERY 1 DAY(S) (QD) DOSAGE FORM: NOT SPECIFIED/ 20MG 1X/DAY?...
     Route: 048
     Dates: start: 20170329, end: 20170330
  42. DEXAMETHASONE [Suspect]
     Active Substance: DEXAMETHASONE
     Indication: Supportive care
     Dosage: DOSE DESCRIPTION : 20.0 MILLIGRAM; 1 EVERY 1 DAY(S) (QD)?DAILY DOSE : 20 MILLIGRAM
     Route: 048
  43. DEXAMETHASONE [Suspect]
     Active Substance: DEXAMETHASONE
     Indication: Supportive care
     Dosage: DOSE DESCRIPTION : 20.0 MILLIGRAM; 1 EVERY 1 DAY(S) (QD)?DAILY DOSE : 20 MILLIGRAM
     Route: 048
  44. DEXAMETHASONE [Suspect]
     Active Substance: DEXAMETHASONE
     Indication: Supportive care
     Dosage: DOSE DESCRIPTION : 20.0 MILLIGRAM; 1 EVERY 1 DAY(S) (QD)?DAILY DOSE : 20 MILLIGRAM
     Route: 048
  45. DEXAMETHASONE [Suspect]
     Active Substance: DEXAMETHASONE
     Indication: Supportive care
     Dosage: DOSE DESCRIPTION : 20.0 MILLIGRAM; 1 EVERY 1 DAY(S) (QD)?DAILY DOSE : 20 MILLIGRAM
     Route: 048
  46. DEXAMETHASONE [Suspect]
     Active Substance: DEXAMETHASONE
     Indication: Supportive care
     Route: 048
  47. DEXAMETHASONE [Suspect]
     Active Substance: DEXAMETHASONE
     Indication: Supportive care
     Dosage: DOSE DESCRIPTION : 20.0 MILLIGRAM; 1 EVERY 1 DAY(S) (QD)?DAILY DOSE : 20 MILLIGRAM
     Route: 065
  48. DEXAMETHASONE [Suspect]
     Active Substance: DEXAMETHASONE
     Indication: Supportive care
     Route: 065
  49. DEXAMETHASONE [Suspect]
     Active Substance: DEXAMETHASONE
     Indication: Supportive care
     Route: 048
  50. DEXAMETHASONE SODIUM PHOSPHATE [Suspect]
     Active Substance: DEXAMETHASONE SODIUM PHOSPHATE
     Indication: Supportive care
     Dosage: DOSE DESCRIPTION : 20 MILLIGRAM, QD?DAILY DOSE : 20 MILLIGRAM
     Route: 048
  51. DOXORUBICIN [Suspect]
     Active Substance: DOXORUBICIN
     Indication: Breast cancer
     Route: 042
  52. DOXORUBICIN [Suspect]
     Active Substance: DOXORUBICIN
     Indication: Breast cancer
     Route: 042
  53. DOXORUBICIN [Suspect]
     Active Substance: DOXORUBICIN
     Indication: Breast cancer
     Route: 042
  54. DOXORUBICIN [Suspect]
     Active Substance: DOXORUBICIN
     Indication: Breast cancer
     Route: 042
  55. DOXORUBICIN [Suspect]
     Active Substance: DOXORUBICIN
     Indication: Breast cancer
     Route: 042
  56. DOXORUBICIN [Suspect]
     Active Substance: DOXORUBICIN
     Indication: Breast cancer
     Route: 042
  57. DOXORUBICIN HYDROCHLORIDE [Suspect]
     Active Substance: DOXORUBICIN HYDROCHLORIDE
     Indication: Breast cancer female
     Route: 042
  58. DOXORUBICIN HYDROCHLORIDE [Suspect]
     Active Substance: DOXORUBICIN HYDROCHLORIDE
     Indication: Breast cancer female
     Route: 042
  59. ENOXAPARIN [Suspect]
     Active Substance: ENOXAPARIN
     Indication: Tardive dyskinesia
     Dosage: DOSE DESCRIPTION : 150.0 MILLIGRAM; 1 EVERY 1 DAY(S) (QD)/ 150MG 1X/DAY?DAILY DOSE : 150 MILLIGRAM
     Route: 058
     Dates: start: 20161222
  60. ENOXAPARIN [Suspect]
     Active Substance: ENOXAPARIN
     Indication: Tardive dyskinesia
     Route: 058
  61. ENOXAPARIN [Suspect]
     Active Substance: ENOXAPARIN
     Indication: Tardive dyskinesia
     Dosage: DOSE DESCRIPTION : 150.0 MILLIGRAM; 1 EVERY 1 DAY(S) (QD)/ 150MG 1X/DAY?DAILY DOSE : 150 MILLIGRAM
     Route: 058
     Dates: start: 20161222
  62. ENOXAPARIN [Suspect]
     Active Substance: ENOXAPARIN
     Indication: Tardive dyskinesia
     Dosage: DOSE DESCRIPTION : 150.0 MILLIGRAM; 1 EVERY 1 DAY(S) (QD)/ 150MG 1X/DAY?DAILY DOSE : 150 MILLIGRAM
     Route: 058
     Dates: start: 20161222
  63. ENOXAPARIN [Suspect]
     Active Substance: ENOXAPARIN
     Indication: Tardive dyskinesia
     Route: 058
  64. FILGRASTIM [Suspect]
     Active Substance: FILGRASTIM
     Indication: Supportive care
     Route: 048
  65. FILGRASTIM [Suspect]
     Active Substance: FILGRASTIM
     Indication: Supportive care
     Dosage: DOSE DESCRIPTION : 480 MILLIGRAM, QD?DAILY DOSE : 480 MILLIGRAM
     Route: 065
  66. LEVOFLOXACIN [Suspect]
     Active Substance: LEVOFLOXACIN
     Indication: Tardive dyskinesia
     Dosage: DOSE DESCRIPTION : 500.0 MILLIGRAM; 1 EVERY 1 DAY(S) (QD), DOSAGE FORM NOT SPECIFIED?DAILY DOSE :...
     Route: 048
     Dates: start: 20170209
  67. LEVOFLOXACIN [Suspect]
     Active Substance: LEVOFLOXACIN
     Indication: Tardive dyskinesia
     Route: 048
  68. LEVOFLOXACIN [Suspect]
     Active Substance: LEVOFLOXACIN
     Indication: Tardive dyskinesia
     Dosage: DOSE DESCRIPTION : 500.0 MILLIGRAM; 1 EVERY 1 DAY(S) (QD), DOSAGE FORM NOT SPECIFIED?DAILY DOSE :...
     Route: 048
  69. LEVOFLOXACIN [Suspect]
     Active Substance: LEVOFLOXACIN
     Indication: Tardive dyskinesia
     Dosage: DOSE DESCRIPTION : 500.0 MILLIGRAM; 1 EVERY 1 DAY(S) (QD), DOSAGE FORM NOT SPECIFIED?DAILY DOSE :...
     Route: 048
  70. LORAZEPAM [Suspect]
     Active Substance: LORAZEPAM
     Indication: Tardive dyskinesia
     Dosage: DOSE DESCRIPTION : 0.5 MILLIGRAM , 2 EVERY 1 DAYS / 0.5 MG 2X/DAY?DAILY DOSE : 1 MILLIGRAM
     Route: 048
     Dates: start: 20170123
  71. LORAZEPAM [Suspect]
     Active Substance: LORAZEPAM
     Indication: Tardive dyskinesia
     Dosage: DOSE DESCRIPTION : 0.5 MILLIGRAM , EVERY 12 HOURS (Q12H)?DAILY DOSE : 1 MILLIGRAM
     Route: 048
     Dates: start: 20170123
  72. LORAZEPAM [Suspect]
     Active Substance: LORAZEPAM
     Indication: Tardive dyskinesia
     Dosage: DOSE DESCRIPTION : 0.5 MILLIGRAM , 2 EVERY 1 DAYS / 0.5 MG 2X/DAY?DAILY DOSE : 1 MILLIGRAM
     Route: 048
     Dates: start: 20170123
  73. LORAZEPAM [Suspect]
     Active Substance: LORAZEPAM
     Indication: Tardive dyskinesia
     Dosage: DOSE DESCRIPTION : 0.5 MILLIGRAM , 1 EVERY 1 DAYS(QD)?DAILY DOSE : 0.5 MILLIGRAM
     Route: 048
     Dates: start: 20170123
  74. METOCLOPRAMIDE [Suspect]
     Active Substance: METOCLOPRAMIDE
     Indication: Tardive dyskinesia
     Dosage: DOSE DESCRIPTION : 10 MILLIGRAM, 4 EVERY 1 DAY (QID)?DAILY DOSE : 40 MILLIGRAM
     Route: 048
  75. METOCLOPRAMIDE [Suspect]
     Active Substance: METOCLOPRAMIDE
     Indication: Tardive dyskinesia
     Dosage: DOSE DESCRIPTION : 10 MILLIGRAM, 4 EVERY 1 DAY (QID)?DAILY DOSE : 40 MILLIGRAM
     Route: 048
  76. METOCLOPRAMIDE [Suspect]
     Active Substance: METOCLOPRAMIDE
     Indication: Tardive dyskinesia
     Dosage: DOSE DESCRIPTION : 10 MILLIGRAM, 4 EVERY 1 DAY (QID)?DAILY DOSE : 40 MILLIGRAM
     Route: 048
  77. METOCLOPRAMIDE [Suspect]
     Active Substance: METOCLOPRAMIDE
     Indication: Tardive dyskinesia
     Dosage: DOSE DESCRIPTION : 10 MILLIGRAM, 1 EVERY 1 DAY (QD)?DAILY DOSE : 10 MILLIGRAM
     Route: 048
  78. METOCLOPRAMIDE [Suspect]
     Active Substance: METOCLOPRAMIDE
     Indication: Tardive dyskinesia
     Dosage: DOSE DESCRIPTION : 10 MILLIGRAM, 1 EVERY 6 HOURS(Q6H)?DAILY DOSE : 40 MILLIGRAM
     Route: 048
  79. NEULASTA [Suspect]
     Active Substance: PEGFILGRASTIM
     Indication: Supportive care
     Dosage: DOSE DESCRIPTION : 6 MILLIGRAM, 1 EVERY DAY (QD); FORM: SOLUTION SUBCUTANEOUS?DAILY DOSE : 6 MILL...
     Route: 058
  80. NEULASTA [Suspect]
     Active Substance: PEGFILGRASTIM
     Indication: Supportive care
     Route: 058
  81. NEULASTA [Suspect]
     Active Substance: PEGFILGRASTIM
     Indication: Supportive care
     Route: 058
  82. NEULASTA [Suspect]
     Active Substance: PEGFILGRASTIM
     Indication: Supportive care
     Route: 058
  83. NEULASTA [Suspect]
     Active Substance: PEGFILGRASTIM
     Indication: Supportive care
     Route: 058
  84. NEULASTA [Suspect]
     Active Substance: PEGFILGRASTIM
     Indication: Supportive care
     Route: 058
  85. NEULASTA [Suspect]
     Active Substance: PEGFILGRASTIM
     Indication: Supportive care
     Route: 058
  86. NEUPOGEN [Suspect]
     Active Substance: FILGRASTIM
     Indication: Supportive care
     Dosage: DOSE DESCRIPTION : 480 MILLIGRAM, QD?DAILY DOSE : 480 MILLIGRAM
     Route: 048
  87. NEUPOGEN [Suspect]
     Active Substance: FILGRASTIM
     Indication: Supportive care
     Dosage: DOSE DESCRIPTION : 480 MILLIGRAM, QD?DAILY DOSE : 480 MILLIGRAM
     Route: 048
  88. NEUPOGEN [Suspect]
     Active Substance: FILGRASTIM
     Indication: Supportive care
     Dosage: DOSE DESCRIPTION : 480 MILLIGRAM, QD?DAILY DOSE : 480 MILLIGRAM
     Route: 048
  89. NEUPOGEN [Suspect]
     Active Substance: FILGRASTIM
     Indication: Supportive care
     Dosage: DOSE DESCRIPTION : 480 MILLIGRAM, QD?DAILY DOSE : 480 MILLIGRAM
     Route: 048
  90. NEUPOGEN [Suspect]
     Active Substance: FILGRASTIM
     Indication: Supportive care
     Dosage: DOSE DESCRIPTION : 125 MILLIGRAM, QD?DAILY DOSE : 125 MILLIGRAM
     Route: 048
  91. NEUPOGEN [Suspect]
     Active Substance: FILGRASTIM
     Indication: Supportive care
     Dosage: DOSE DESCRIPTION : 480 MILLIGRAM, QD?DAILY DOSE : 480 MILLIGRAM
     Route: 048
  92. ZOFRAN [Suspect]
     Active Substance: ONDANSETRON HYDROCHLORIDE
     Indication: Supportive care
     Route: 048
  93. ZOFRAN [Suspect]
     Active Substance: ONDANSETRON HYDROCHLORIDE
     Indication: Supportive care
     Route: 048
  94. ZOFRAN [Suspect]
     Active Substance: ONDANSETRON HYDROCHLORIDE
     Indication: Supportive care
     Route: 048
  95. ZOFRAN [Suspect]
     Active Substance: ONDANSETRON HYDROCHLORIDE
     Indication: Supportive care
     Route: 048
  96. ZOFRAN [Suspect]
     Active Substance: ONDANSETRON HYDROCHLORIDE
     Indication: Supportive care
     Route: 048
  97. ZOFRAN [Suspect]
     Active Substance: ONDANSETRON HYDROCHLORIDE
     Indication: Supportive care
     Route: 048
  98. ZOFRAN [Suspect]
     Active Substance: ONDANSETRON HYDROCHLORIDE
     Indication: Supportive care
     Route: 048
  99. ZOFRAN [Suspect]
     Active Substance: ONDANSETRON HYDROCHLORIDE
     Indication: Supportive care
     Dosage: DOSE DESCRIPTION : 8 MILLIGRAM, QD; FORM: ORODISPERSIBLE FILM?DAILY DOSE : 8 MILLIGRAM
     Route: 048
  100. ZOFRAN [Suspect]
     Active Substance: ONDANSETRON HYDROCHLORIDE
     Indication: Supportive care
     Route: 048
  101. ZOFRAN [Suspect]
     Active Substance: ONDANSETRON HYDROCHLORIDE
     Indication: Supportive care
     Route: 048
  102. ZOFRAN [Suspect]
     Active Substance: ONDANSETRON HYDROCHLORIDE
     Indication: Supportive care
     Dosage: DOSE DESCRIPTION : 8 MILLIGRAM, QD; FORM: ORODISPERSIBLE FILM?DAILY DOSE : 8 MILLIGRAM
     Route: 048
  103. ZOFRAN [Suspect]
     Active Substance: ONDANSETRON HYDROCHLORIDE
     Indication: Supportive care
     Route: 048
  104. ZOFRAN [Suspect]
     Active Substance: ONDANSETRON HYDROCHLORIDE
     Indication: Supportive care
     Route: 048
  105. ZOFRAN [Suspect]
     Active Substance: ONDANSETRON HYDROCHLORIDE
     Indication: Supportive care
     Route: 048
  106. ZOFRAN [Suspect]
     Active Substance: ONDANSETRON HYDROCHLORIDE
     Indication: Supportive care
     Route: 048
  107. PACLITAXEL [Suspect]
     Active Substance: PACLITAXEL
     Indication: Breast cancer
     Route: 042
  108. PACLITAXEL [Suspect]
     Active Substance: PACLITAXEL
     Indication: Breast cancer
     Dosage: DOSE DESCRIPTION : 243MILLIGRAM,QD?DAILY DOSE : 243 MILLIGRAM
     Route: 042
  109. PACLITAXEL [Suspect]
     Active Substance: PACLITAXEL
     Indication: Breast cancer
     Dosage: DOSE DESCRIPTION : 393 MILLIGRAM, QD?DAILY DOSE : 393 MILLIGRAM?REGIMEN DOSE : 393  MILLIGRAM
     Route: 042
  110. PACLITAXEL [Suspect]
     Active Substance: PACLITAXEL
     Indication: Breast cancer
     Route: 042
  111. PACLITAXEL [Suspect]
     Active Substance: PACLITAXEL
     Indication: Breast cancer
     Dosage: DOSE DESCRIPTION : 393 MILLIGRAM, 1 EVERY 1 DAYS (QD)?DAILY DOSE : 393 MILLIGRAM?REGIMEN DOSE : 3...
     Route: 042
  112. PACLITAXEL [Suspect]
     Active Substance: PACLITAXEL
     Indication: Breast cancer
     Route: 042
  113. PACLITAXEL [Suspect]
     Active Substance: PACLITAXEL
     Indication: Breast cancer
     Route: 042
  114. PACLITAXEL [Suspect]
     Active Substance: PACLITAXEL
     Indication: Breast cancer
     Route: 042
  115. PEGFILGRASTIM [Suspect]
     Active Substance: PEGFILGRASTIM
     Indication: Product used for unknown indication
     Route: 058
  116. CYCLOPHOSPHAMIDE [Suspect]
     Active Substance: CYCLOPHOSPHAMIDE
     Indication: Breast cancer
     Route: 042
  117. CYCLOPHOSPHAMIDE [Suspect]
     Active Substance: CYCLOPHOSPHAMIDE
     Indication: Breast cancer
     Route: 042
  118. CYCLOPHOSPHAMIDE [Suspect]
     Active Substance: CYCLOPHOSPHAMIDE
     Indication: Breast cancer
     Route: 042
  119. CYCLOPHOSPHAMIDE [Suspect]
     Active Substance: CYCLOPHOSPHAMIDE
     Indication: Breast cancer
     Route: 042
  120. CYCLOPHOSPHAMIDE [Suspect]
     Active Substance: CYCLOPHOSPHAMIDE
     Indication: Breast cancer
     Route: 042
  121. CYCLOPHOSPHAMIDE [Suspect]
     Active Substance: CYCLOPHOSPHAMIDE
     Indication: Breast cancer
     Route: 042
  122. CYCLOPHOSPHAMIDE [Suspect]
     Active Substance: CYCLOPHOSPHAMIDE
     Indication: Breast cancer
     Route: 042
  123. CYCLOPHOSPHAMIDE [Suspect]
     Active Substance: CYCLOPHOSPHAMIDE
     Indication: Breast cancer
     Route: 042
  124. RANITIDINE [Suspect]
     Active Substance: RANITIDINE
     Indication: Tardive dyskinesia
     Route: 048
  125. RANITIDINE HYDROCHLORIDE [Suspect]
     Active Substance: RANITIDINE HYDROCHLORIDE
     Indication: Tardive dyskinesia
     Dosage: DOSE DESCRIPTION : 150 MILLIGRAM, 2 EVERY 1 DAY?DAILY DOSE : 300 MILLIGRAM
     Route: 048
  126. RANITIDINE HYDROCHLORIDE [Suspect]
     Active Substance: RANITIDINE HYDROCHLORIDE
     Indication: Tardive dyskinesia
     Route: 048
     Dates: start: 20170112
  127. RANITIDINE HYDROCHLORIDE [Suspect]
     Active Substance: RANITIDINE HYDROCHLORIDE
     Indication: Tardive dyskinesia
     Dosage: DOSE DESCRIPTION : 2 EVERY 1 DAY
     Route: 048
  128. RANITIDINE HYDROCHLORIDE [Suspect]
     Active Substance: RANITIDINE HYDROCHLORIDE
     Indication: Tardive dyskinesia
     Dosage: DOSE DESCRIPTION : 150 MILLIGRAM, 1 EVERY 12 HOURS?DAILY DOSE : 300 MILLIGRAM
     Route: 048
  129. RANITIDINE HYDROCHLORIDE [Suspect]
     Active Substance: RANITIDINE HYDROCHLORIDE
     Indication: Tardive dyskinesia
     Dosage: DOSE DESCRIPTION : 2 EVERY 1 DAY
     Route: 048
  130. RANITIDINE HYDROCHLORIDE [Suspect]
     Active Substance: RANITIDINE HYDROCHLORIDE
     Indication: Tardive dyskinesia
     Dosage: DOSE DESCRIPTION : 2 EVERY 1 DAY
     Route: 048
  131. RANITIDINE HYDROCHLORIDE [Suspect]
     Active Substance: RANITIDINE HYDROCHLORIDE
     Indication: Tardive dyskinesia
     Dosage: DOSE DESCRIPTION : 150 MG 2 EVERY 1 DAY; 150 MG 2X/DAY?DAILY DOSE : 300 MILLIGRAM
     Route: 048
  132. RANITIDINE HYDROCHLORIDE [Suspect]
     Active Substance: RANITIDINE HYDROCHLORIDE
     Indication: Tardive dyskinesia
     Dosage: DOSE DESCRIPTION : 150 MILLIGRAM, 2 EVERY 1 DAY?DAILY DOSE : 300 MILLIGRAM
     Route: 048
  133. RANITIDINE HYDROCHLORIDE [Suspect]
     Active Substance: RANITIDINE HYDROCHLORIDE
     Indication: Tardive dyskinesia
     Dosage: DOSE DESCRIPTION : 2 EVERY 1 DAY
     Route: 048
  134. RANITIDINE HYDROCHLORIDE [Suspect]
     Active Substance: RANITIDINE HYDROCHLORIDE
     Indication: Tardive dyskinesia
     Dosage: DOSE DESCRIPTION : 2 EVERY 1 DAY
     Route: 048
  135. RANITIDINE HYDROCHLORIDE [Suspect]
     Active Substance: RANITIDINE HYDROCHLORIDE
     Indication: Tardive dyskinesia
     Dosage: DOSE DESCRIPTION : 2 EVERY 1 DAY
     Route: 048
  136. TRASTUZUMAB [Suspect]
     Active Substance: TRASTUZUMAB
     Indication: Tardive dyskinesia
     Route: 065
  137. TRASTUZUMAB [Suspect]
     Active Substance: TRASTUZUMAB
     Indication: Tardive dyskinesia
     Route: 065
  138. TRASTUZUMAB [Suspect]
     Active Substance: TRASTUZUMAB
     Indication: Tardive dyskinesia
     Route: 048
  139. TRASTUZUMAB [Suspect]
     Active Substance: TRASTUZUMAB
     Indication: Tardive dyskinesia
     Route: 065
  140. TRASTUZUMAB [Suspect]
     Active Substance: TRASTUZUMAB
     Indication: Tardive dyskinesia
     Route: 065
  141. TRASTUZUMAB [Suspect]
     Active Substance: TRASTUZUMAB
     Indication: Tardive dyskinesia
     Dosage: DOSE DESCRIPTION : 866.0 MILLIGRAM,QD?DAILY DOSE : 866 MILLIGRAM?REGIMEN DOSE : 866  MILLIGRAM
     Route: 065
     Dates: start: 20170330
  142. TRASTUZUMAB [Suspect]
     Active Substance: TRASTUZUMAB
     Indication: Tardive dyskinesia
     Route: 065
  143. TRASTUZUMAB [Suspect]
     Active Substance: TRASTUZUMAB
     Indication: Tardive dyskinesia
     Route: 065
  144. TRASTUZUMAB [Suspect]
     Active Substance: TRASTUZUMAB
     Indication: Tardive dyskinesia
     Dosage: DOSE DESCRIPTION : 866.0 MILLIGRAM,QD?DAILY DOSE : 866 MILLIGRAM?REGIMEN DOSE : 866  MILLIGRAM
     Route: 065
     Dates: start: 20170330
  145. TRASTUZUMAB [Suspect]
     Active Substance: TRASTUZUMAB
     Indication: Tardive dyskinesia
     Route: 065
     Dates: start: 20170330
  146. TRASTUZUMAB [Suspect]
     Active Substance: TRASTUZUMAB
     Indication: Tardive dyskinesia
     Route: 065
  147. TRASTUZUMAB [Suspect]
     Active Substance: TRASTUZUMAB
     Indication: Tardive dyskinesia
     Route: 048
  148. TRASTUZUMAB [Suspect]
     Active Substance: TRASTUZUMAB
     Indication: Tardive dyskinesia
     Route: 065

REACTIONS (11)
  - Atelectasis [Recovered/Resolved]
  - Computerised tomogram thorax abnormal [Recovered/Resolved]
  - Cough [Recovered/Resolved]
  - Dyspnoea [Recovered/Resolved]
  - Fatigue [Recovered/Resolved]
  - Gastrointestinal disorder [Recovered/Resolved]
  - Hypoxia [Recovered/Resolved]
  - Nausea [Recovered/Resolved]
  - Pyrexia [Recovered/Resolved]
  - Rash [Recovered/Resolved]
  - Off label use [Unknown]

NARRATIVE: CASE EVENT DATE: 20170209
